FAERS Safety Report 12728984 (Version 1)
Quarter: 2016Q3

REPORT INFORMATION
  Report Type: Spontaneous
  Country: US (occurrence: US)
  Receive Date: 20160908
  Receipt Date: 20160908
  Transmission Date: 20161109
  Serious: Yes (Disabling)
  Sender: FDA-Public Use
  Company Number: None

PATIENT
  Age: 51 Year
  Sex: Female
  Weight: 74.25 kg

DRUGS (9)
  1. SPIRONOLACTONE 25 MG TAB UNKNOWN [Suspect]
     Active Substance: SPIRONOLACTONE
     Indication: HYPERTENSION
     Route: 048
     Dates: start: 20140715, end: 20160806
  2. AMLODIPINE [Concomitant]
     Active Substance: AMLODIPINE BESYLATE
  3. CURCUMIN [Concomitant]
     Active Substance: CURCUMIN
  4. INDAPAMIDE. [Concomitant]
     Active Substance: INDAPAMIDE
  5. MAGNESIUM [Concomitant]
     Active Substance: MAGNESIUM
  6. HAIR, SKIN, AND NAILS [Concomitant]
  7. POTASSIUM CITRATE. [Concomitant]
     Active Substance: POTASSIUM CITRATE
  8. HYALURONIC ACID [Concomitant]
     Active Substance: HYALURONIC ACID
  9. BABY ASPIRIN [Concomitant]
     Active Substance: ASPIRIN

REACTIONS (2)
  - Libido decreased [None]
  - Inadequate lubrication [None]

NARRATIVE: CASE EVENT DATE: 20160701
